FAERS Safety Report 5517355-7 (Version None)
Quarter: 2007Q4

REPORT INFORMATION
  Report Type: 
  Country: None (occurrence: None)
  Receive Date: 20071114
  Receipt Date: 20071030
  Transmission Date: 20080405
  Serious: Yes (Hospitalization)
  Sender: FDA-Public Use
  Company Number: JP-AMGEN-US250639

PATIENT
  Sex: Female
  Weight: 55 kg

DRUGS (11)
  1. ENBREL [Suspect]
     Indication: RHEUMATOID ARTHRITIS
     Route: 058
     Dates: start: 20070618, end: 20071002
  2. FOLIAMIN [Concomitant]
     Route: 048
     Dates: start: 20070301, end: 20071002
  3. CLINORIL [Concomitant]
     Route: 048
     Dates: start: 19980101
  4. PREDNISOLONE [Concomitant]
     Dosage: 3 MG; UNSPECIFIED FREQUENCY
     Dates: start: 20060201, end: 20071002
  5. ZANTAC [Concomitant]
     Route: 048
     Dates: start: 19980101
  6. BONALON [Concomitant]
     Route: 048
     Dates: start: 20030101
  7. SULFASALAZINE [Concomitant]
     Dosage: 2 TABLETS; UNSPECIFIED FREQUENCY
     Dates: start: 20040801
  8. RHEUMATREX [Concomitant]
     Indication: RHEUMATOID ARTHRITIS
     Dosage: 2 MG X 2 TABLETS
     Route: 048
     Dates: start: 20060201, end: 20060301
  9. RHEUMATREX [Concomitant]
     Dosage: 2 MG X 4 TABLETS
     Route: 048
     Dates: start: 20060301, end: 20061101
  10. RHEUMATREX [Concomitant]
     Dosage: UNKNOWN
     Route: 048
     Dates: start: 20061101, end: 20071002
  11. SELBEX [Concomitant]
     Route: 048
     Dates: start: 19980101

REACTIONS (3)
  - DISORIENTATION [None]
  - ENCEPHALITIS HERPES [None]
  - HERPES ZOSTER [None]
